FAERS Safety Report 20262261 (Version 2)
Quarter: 2022Q1

REPORT INFORMATION
  Report Type: Spontaneous
  Country: DE (occurrence: DE)
  Receive Date: 20211231
  Receipt Date: 20220214
  Transmission Date: 20220423
  Serious: Yes (Hospitalization)
  Sender: FDA-Public Use
  Company Number: DE-ADRED-06940-01

PATIENT
  Age: 68 Year
  Sex: Female

DRUGS (14)
  1. PERTUZUMAB [Suspect]
     Active Substance: PERTUZUMAB
     Indication: Product used for unknown indication
     Dosage: 840 MG, ON THE NINETEENTH MAY, SOLUTION FOR INJECTION / INFUSION
     Route: 042
     Dates: start: 20210519
  2. PERTUZUMAB [Suspect]
     Active Substance: PERTUZUMAB
     Route: 042
     Dates: start: 20210609
  3. TRASTUZUMAB [Suspect]
     Active Substance: TRASTUZUMAB
     Indication: Product used for unknown indication
     Route: 042
     Dates: start: 20210609
  4. TRASTUZUMAB [Suspect]
     Active Substance: TRASTUZUMAB
     Dosage: 670 MG, ON THE NINETEENTH MAY, SOLUTION FOR INJECTION / INFUSION
     Route: 042
     Dates: start: 20210519
  5. DOCETAXEL [Suspect]
     Active Substance: DOCETAXEL
     Indication: Product used for unknown indication
     Dosage: PAUSED ON JUNE 9TH DUE TO SIDE EFFECTS, SOLUTION FOR INJECTION / INFUSION
     Route: 042
  6. DOCETAXEL [Suspect]
     Active Substance: DOCETAXEL
     Dosage: 75 MG, ON MAY NINETEENTH, SOLUTION FOR INJECTION / INFUSION
     Route: 042
     Dates: start: 20210519
  7. FENTANYL [Concomitant]
     Active Substance: FENTANYL
     Dosage: 0.2 MG, BIS DREIMAL PRO TAG BEI BEDARF, SCHMELZTABLETTEN
     Route: 060
  8. PREGABALIN [Concomitant]
     Active Substance: PREGABALIN
     Dosage: 25 MG, 0-0-1-0, KAPSELN
     Route: 048
  9. ZOLEDRONIC ACID [Concomitant]
     Active Substance: ZOLEDRONIC ACID
     Route: 042
  10. DEXAMETHASONE [Concomitant]
     Active Substance: DEXAMETHASONE
     Dosage: 4 MG, 1-0-1-0, TABLETTEN
     Route: 048
  11. NALOXONE HYDROCHLORIDE\OXYCODONE HYDROCHLORIDE [Concomitant]
     Active Substance: NALOXONE HYDROCHLORIDE\OXYCODONE HYDROCHLORIDE
     Dosage: 5|10 MG, 1-0-2-0, RETARD-KAPSELN
     Route: 048
  12. METAMIZOLE [Concomitant]
     Active Substance: METAMIZOLE
     Dosage: 500 MG, 1-1-1-1, TABLETTEN
     Route: 048
  13. CHOLECALCIFEROL [Concomitant]
     Active Substance: CHOLECALCIFEROL
     Dosage: 1000 IE, 1-0-0-0, KAPSELN
     Route: 048
  14. PANTOPRAZOLE [Concomitant]
     Active Substance: PANTOPRAZOLE
     Dosage: 40 MG, 1-0-0-0, TABLETTEN
     Route: 048

REACTIONS (3)
  - Oesophageal pain [Unknown]
  - Vomiting [Unknown]
  - Dysphagia [Unknown]
